FAERS Safety Report 8425129-2 (Version None)
Quarter: 2012Q2

REPORT INFORMATION
  Report Type: 
  Country: None (occurrence: None)
  Receive Date: 20120611
  Receipt Date: 20120606
  Transmission Date: 20120825
  Serious: No
  Sender: FDA-Public Use
  Company Number: US-PFIZER INC-2012136438

PATIENT
  Sex: Female
  Weight: 83 kg

DRUGS (3)
  1. CRESTOR [Concomitant]
     Dosage: 20 MG DAILY
  2. NICOTROL [Suspect]
     Indication: SMOKING CESSATION THERAPY
     Dosage: UNK
     Dates: start: 20110801, end: 20120601
  3. CRESTOR [Concomitant]
     Indication: BLOOD CHOLESTEROL INCREASED
     Dosage: 10 MG DAILY

REACTIONS (2)
  - DRUG WITHDRAWAL SYNDROME [None]
  - NERVOUSNESS [None]
